FAERS Safety Report 8606037-0 (Version None)
Quarter: 2012Q3

REPORT INFORMATION
  Report Type: 
  Country: None (occurrence: None)
  Receive Date: 20120820
  Receipt Date: 20120815
  Transmission Date: 20120928
  Serious: Yes (Other)
  Sender: FDA-Public Use
  Company Number: JP-ROCHE-1096995

PATIENT
  Sex: Female
  Weight: 54 kg

DRUGS (3)
  1. HERCEPTIN [Suspect]
     Route: 041
     Dates: start: 20120611, end: 20120611
  2. HERCEPTIN [Suspect]
     Route: 041
     Dates: start: 20120702, end: 20120702
  3. HERCEPTIN [Suspect]
     Indication: BREAST CANCER
     Route: 041
     Dates: start: 20120521, end: 20120521

REACTIONS (1)
  - SKIN EXFOLIATION [None]
